FAERS Safety Report 17297509 (Version 4)
Quarter: 2021Q2

REPORT INFORMATION
  Report Type: Report from Study
  Country: US (occurrence: US)
  Receive Date: 20200122
  Receipt Date: 20210518
  Transmission Date: 20210716
  Serious: Yes (Hospitalization, Other)
  Sender: FDA-Public Use
  Company Number: US-ASTELLAS-2019US020636

PATIENT
  Sex: Male

DRUGS (3)
  1. FENTANYL. [Concomitant]
     Active Substance: FENTANYL
     Indication: PRODUCT USED FOR UNKNOWN INDICATION
     Dosage: UNK UNK, UNKNOWN FREQ.
     Route: 065
  2. ENZALUTAMIDE [Suspect]
     Active Substance: ENZALUTAMIDE
     Indication: PROSTATE CANCER
     Route: 048
     Dates: start: 201904
  3. ENZALUTAMIDE [Suspect]
     Active Substance: ENZALUTAMIDE
     Route: 048
     Dates: start: 20190426

REACTIONS (10)
  - Malignant neoplasm progression [Unknown]
  - Bone scan abnormal [Unknown]
  - Vomiting [Unknown]
  - Back pain [Unknown]
  - Haematemesis [Unknown]
  - Abdominal discomfort [Unknown]
  - Gastric disorder [Unknown]
  - Prostatic specific antigen increased [Unknown]
  - Nausea [Unknown]
  - Product availability issue [Unknown]

NARRATIVE: CASE EVENT DATE: 2019
